FAERS Safety Report 21439211 (Version 3)
Quarter: 2022Q4

REPORT INFORMATION
  Report Type: Spontaneous
  Country: AR (occurrence: AR)
  Receive Date: 20221011
  Receipt Date: 20221228
  Transmission Date: 20230113
  Serious: No
  Sender: FDA-Public Use
  Company Number: AR-PFIZER INC-PV202200076313

PATIENT
  Age: 11 Year
  Sex: Female

DRUGS (1)
  1. GENOTROPIN [Suspect]
     Active Substance: SOMATROPIN
     Indication: Growth hormone deficiency
     Dosage: 0.6 TO 1 MG, 7X PER WEEK
     Dates: start: 20220621

REACTIONS (3)
  - Device difficult to use [Unknown]
  - Device leakage [Unknown]
  - Device mechanical issue [Unknown]

NARRATIVE: CASE EVENT DATE: 20220901
